FAERS Safety Report 10890811 (Version 1)
Quarter: 2015Q1

REPORT INFORMATION
  Report Type: Spontaneous
  Country: US (occurrence: US)
  Receive Date: 20150305
  Receipt Date: 20150305
  Transmission Date: 20150721
  Serious: Yes (Death, Congenital Anomaly, Other)
  Sender: FDA-Public Use
  Company Number: US-APOTEX-2015AP007100

PATIENT

DRUGS (2)
  1. PAXIL [Suspect]
     Active Substance: PAROXETINE HYDROCHLORIDE
     Dosage: 40 MG, UNK
  2. PAXIL [Suspect]
     Active Substance: PAROXETINE HYDROCHLORIDE
     Indication: ANXIETY
     Dosage: 20 MG, UNK
     Route: 064

REACTIONS (5)
  - Necrotising colitis [Fatal]
  - Foetal exposure during pregnancy [Unknown]
  - Trisomy 21 [Unknown]
  - Heart disease congenital [Fatal]
  - Cardiac failure congestive [Fatal]
